FAERS Safety Report 4398597-3 (Version None)
Quarter: 2004Q3

REPORT INFORMATION
  Report Type: 
  Country: None (occurrence: None)
  Receive Date: 20040712
  Receipt Date: 20040702
  Transmission Date: 20050211
  Serious: No
  Sender: FDA-Public Use
  Company Number: J081-002-001694

PATIENT
  Age: 88 Year
  Sex: Female
  Weight: 33 kg

DRUGS (5)
  1. ARICEPT [Suspect]
     Indication: DEMENTIA ALZHEIMER'S TYPE
     Dosage: 5 MG, 1 IN 1 D, ORAL
     Route: 048
  2. DOGMATYL (SULPIRIDE) [Concomitant]
  3. SAIKO-KA-RYUKOTSU-B OEIR-TO (HERBAL PREPARATION) [Concomitant]
  4. PROMAC (POLAPREZINC) [Concomitant]
  5. LANSOPRAZOLE [Concomitant]

REACTIONS (4)
  - CONVULSION [None]
  - FALL [None]
  - HYPOGLYCAEMIA [None]
  - LOSS OF CONSCIOUSNESS [None]
